FAERS Safety Report 7370726-9 (Version None)
Quarter: 2011Q1

REPORT INFORMATION
  Report Type: 
  Country: None (occurrence: None)
  Receive Date: 20110323
  Receipt Date: 20110315
  Transmission Date: 20110831
  Serious: Yes (Other)
  Sender: FDA-Public Use
  Company Number: RU-BAYER-2011-004516

PATIENT
  Sex: Female

DRUGS (1)
  1. ELEVIT PRONATAL [Suspect]
     Indication: PRODUCT USED FOR UNKNOWN INDICATION

REACTIONS (3)
  - CELL DEATH [None]
  - RASH [None]
  - HEPATIC ENZYME INCREASED [None]
